FAERS Safety Report 4734760-7 (Version None)
Quarter: 2005Q3

REPORT INFORMATION
  Report Type: 
  Country: None (occurrence: None)
  Receive Date: 20050804
  Receipt Date: 20050713
  Transmission Date: 20060218
  Serious: Yes (Death, Hospitalization)
  Sender: FDA-Public Use
  Company Number: GB-GLAXOSMITHKLINE-B0387719A

PATIENT
  Age: 75 Year
  Sex: Male

DRUGS (10)
  1. AVANDAMET [Suspect]
     Indication: DIABETES MELLITUS NON-INSULIN-DEPENDENT
     Dates: start: 20050326
  2. ASPIRIN [Concomitant]
     Dosage: 75MG PER DAY
  3. ATORVASTATIN CALCIUM [Concomitant]
     Dosage: 20MG PER DAY
  4. DIAZEPAM [Concomitant]
  5. DIHYDROCODEINE [Concomitant]
     Dosage: 30MG FOUR TIMES PER DAY
  6. AMITRIPTYLINE [Concomitant]
     Dosage: 50MG AT NIGHT
  7. FUROSEMIDE [Concomitant]
  8. FERROUS SULFATE TAB [Concomitant]
  9. FYBOGEL [Concomitant]
  10. PARACETAMOL [Concomitant]

REACTIONS (31)
  - ABDOMINAL TENDERNESS [None]
  - ABNORMAL CLOTTING FACTOR [None]
  - BILE DUCT OBSTRUCTION [None]
  - BILE DUCT STONE [None]
  - CARDIAC ARREST [None]
  - CEREBROVASCULAR ACCIDENT [None]
  - CHOLANGITIS [None]
  - CHOLECYSTITIS ACUTE [None]
  - CHOLELITHIASIS [None]
  - CONFUSIONAL STATE [None]
  - CONGESTIVE CARDIOMYOPATHY [None]
  - CORONARY ARTERY ATHEROSCLEROSIS [None]
  - DIABETES MELLITUS [None]
  - DIARRHOEA [None]
  - DIVERTICULUM [None]
  - ELECTROMECHANICAL DISSOCIATION [None]
  - HEPATIC FAILURE [None]
  - HEPATIC FIBROSIS [None]
  - HEPATIC NECROSIS [None]
  - ISCHAEMIC CARDIOMYOPATHY [None]
  - LIVER FUNCTION TEST ABNORMAL [None]
  - MYOCARDIAL ISCHAEMIA [None]
  - PERIPHERAL VASCULAR DISORDER [None]
  - PERITONITIS [None]
  - PULMONARY OEDEMA [None]
  - PYREXIA [None]
  - RASH ERYTHEMATOUS [None]
  - SEPSIS [None]
  - TACHYCARDIA [None]
  - TRACHEOBRONCHITIS [None]
  - VOMITING [None]
